FAERS Safety Report 13040740 (Version 1)
Quarter: 2016Q4

REPORT INFORMATION
  Report Type: Spontaneous
  Country: AU (occurrence: AU)
  Receive Date: 20161219
  Receipt Date: 20161219
  Transmission Date: 20170207
  Serious: Yes (Other)
  Sender: FDA-Public Use
  Company Number: AU-PFIZER INC-2016580225

PATIENT
  Sex: Female

DRUGS (1)
  1. LYRICA [Suspect]
     Active Substance: PREGABALIN
     Dosage: 25 MG, WEEKLY

REACTIONS (19)
  - Libido decreased [Unknown]
  - Depersonalisation/derealisation disorder [Unknown]
  - Apathy [Unknown]
  - Ear infection [Not Recovered/Not Resolved]
  - Cold sweat [Unknown]
  - Disturbance in attention [Unknown]
  - Headache [Unknown]
  - Nausea [Unknown]
  - Memory impairment [Unknown]
  - Diarrhoea [Unknown]
  - Depressed mood [Unknown]
  - Hyperhidrosis [Unknown]
  - Musculoskeletal stiffness [Unknown]
  - Vision blurred [Unknown]
  - Confusional state [Unknown]
  - Insomnia [Unknown]
  - Suicidal ideation [Unknown]
  - Anxiety [Unknown]
  - Withdrawal syndrome [Unknown]
